FAERS Safety Report 8966059 (Version 1)
Quarter: 2012Q4

REPORT INFORMATION
  Report Type: 
  Country: US (occurrence: US)
  Receive Date: 20121217
  Receipt Date: 20121217
  Transmission Date: 20130627
  Serious: No
  Sender: FDA-Public Use
  Company Number: US-ABBOTT-12P-163-0936245-00

PATIENT
  Sex: Female
  Weight: 83.99 kg

DRUGS (8)
  1. TRILIPIX [Suspect]
     Indication: BLOOD CHOLESTEROL INCREASED
     Dates: start: 20120401, end: 20120514
  2. METFORMIN [Concomitant]
     Indication: DIABETES MELLITUS
  3. LOVASA [Concomitant]
     Indication: BLOOD CHOLESTEROL INCREASED
  4. NEXIUM [Concomitant]
     Indication: GASTROOESOPHAGEAL REFLUX DISEASE
  5. METOPROLOL [Concomitant]
     Indication: HYPERTENSION
  6. PREDAXA [Concomitant]
     Indication: THROMBOSIS PROPHYLAXIS
  7. LEVOTHYROXINE [Concomitant]
     Indication: HYPOTHYROIDISM
  8. AVAPRO [Concomitant]
     Indication: HYPERTENSION

REACTIONS (2)
  - Respiratory tract infection [Not Recovered/Not Resolved]
  - Muscular weakness [Not Recovered/Not Resolved]
